FAERS Safety Report 7990635-1 (Version None)
Quarter: 2011Q4

REPORT INFORMATION
  Report Type: 
  Country: None (occurrence: None)
  Receive Date: 20111219
  Receipt Date: 20110829
  Transmission Date: 20120403
  Serious: No
  Sender: FDA-Public Use
  Company Number: US-ASTRAZENECA-2011SE52145

PATIENT
  Age: 76 Year
  Sex: Female

DRUGS (1)
  1. CRESTOR [Suspect]
     Route: 048

REACTIONS (5)
  - BACK PAIN [None]
  - BLOOD CHOLESTEROL INCREASED [None]
  - SPINAL COLUMN STENOSIS [None]
  - CHEST PAIN [None]
  - HYPERTENSION [None]
